FAERS Safety Report 15335233 (Version 1)
Quarter: 2018Q3

REPORT INFORMATION
  Report Type: Spontaneous
  Country: AU (occurrence: AU)
  Receive Date: 20180830
  Receipt Date: 20180830
  Transmission Date: 20181010
  Serious: Yes (Hospitalization, Other)
  Sender: FDA-Public Use
  Company Number: AU-JNJFOC-20180831619

PATIENT
  Age: 35 Year
  Sex: Male

DRUGS (3)
  1. AZATHIOPRINE. [Concomitant]
     Active Substance: AZATHIOPRINE
     Route: 065
  2. STELARA [Suspect]
     Active Substance: USTEKINUMAB
     Indication: CROHN^S DISEASE
     Route: 058
     Dates: start: 201712
  3. PREDNISOLONE. [Concomitant]
     Active Substance: PREDNISOLONE
     Route: 065

REACTIONS (1)
  - Small intestinal perforation [Unknown]

NARRATIVE: CASE EVENT DATE: 201808
